FAERS Safety Report 9667916 (Version 2)
Quarter: 2013Q4

REPORT INFORMATION
  Report Type: Report from Study
  Country: GB (occurrence: GB)
  Receive Date: 20131104
  Receipt Date: 20131208
  Transmission Date: 20140711
  Serious: Yes (Other)
  Sender: FDA-Public Use
  Company Number: GB-AMGEN-GBRCT2013077251

PATIENT
  Age: 77 Year
  Sex: Female
  Weight: 57 kg

DRUGS (2)
  1. ETANERCEPT [Suspect]
     Indication: RHEUMATOID ARTHRITIS
     Dosage: 25 MG, 2 TIMES/WK
     Route: 065
     Dates: start: 20040730
  2. SULPHASALAZINE [Concomitant]
     Dosage: UNK

REACTIONS (1)
  - Colon cancer [Unknown]
